FAERS Safety Report 7552320-X (Version None)
Quarter: 2011Q2

REPORT INFORMATION
  Report Type: 
  Country: None (occurrence: None)
  Receive Date: 20110616
  Receipt Date: 20050516
  Transmission Date: 20111010
  Serious: Yes (Hospitalization)
  Sender: FDA-Public Use
  Company Number: PHHO2005JP04478

PATIENT
  Sex: Female

DRUGS (10)
  1. MOBIC [Concomitant]
     Indication: OSTEOARTHRITIS
     Dosage: 10 MG, UNK
     Route: 048
     Dates: start: 20021113, end: 20040426
  2. DIOVAN [Suspect]
     Indication: HYPERTENSION
     Dosage: 80 MG, QD
     Dates: start: 20021113, end: 20040426
  3. PREMARIN [Concomitant]
     Indication: OVARIAN FAILURE
     Dosage: 625 UG, UNK
     Route: 048
     Dates: start: 20021113
  4. GLAKAY [Concomitant]
     Indication: OSTEOPOROSIS
     Dosage: 45 MG
     Route: 048
     Dates: start: 20021113, end: 20040426
  5. YODEL [Concomitant]
     Indication: CONSTIPATION
     Dosage: 80 MG, UNK
     Route: 048
     Dates: start: 20021118, end: 20040426
  6. ADOFEED [Concomitant]
     Dosage: UNK, UNK
     Dates: start: 20031206, end: 20040426
  7. TRIDOCELAN [Concomitant]
     Indication: NEUROPATHY PERIPHERAL
     Dosage: 2 DF, UNK
     Route: 048
     Dates: start: 20021113
  8. RINDERON-VG [Concomitant]
     Indication: ECZEMA
     Dosage: UNKNOWN
     Dates: start: 20031201, end: 20040426
  9. SELBEX [Concomitant]
     Indication: GASTRITIS
     Dosage: 100 MG, UNK
     Route: 048
     Dates: start: 20021113, end: 20040426
  10. HALCION [Concomitant]
     Indication: INSOMNIA
     Dosage: 125 UG
     Route: 048
     Dates: start: 20021210

REACTIONS (2)
  - ALTERED STATE OF CONSCIOUSNESS [None]
  - CEREBRAL INFARCTION [None]
